FAERS Safety Report 14534475 (Version 3)
Quarter: 2018Q1

REPORT INFORMATION
  Report Type: Report from Study
  Country: US (occurrence: US)
  Receive Date: 20180215
  Receipt Date: 20180330
  Transmission Date: 20180509
  Serious: Yes (Hospitalization)
  Sender: FDA-Public Use
  Company Number: GB-ASTRAZENECA-2013SE11353

PATIENT
  Age: 768 Month
  Sex: Male
  Weight: 165.6 kg

DRUGS (8)
  1. CEFTRIAXONE. [Concomitant]
     Active Substance: CEFTRIAXONE
     Indication: CELLULITIS
     Route: 042
     Dates: start: 20180102
  2. BYDUREON [Suspect]
     Active Substance: EXENATIDE
     Indication: TYPE 2 DIABETES MELLITUS
     Route: 058
     Dates: start: 20160608
  3. BYETTA [Suspect]
     Active Substance: EXENATIDE
     Indication: TYPE 2 DIABETES MELLITUS
     Route: 058
     Dates: start: 2005
  4. METFORMIN [Concomitant]
     Active Substance: METFORMIN HYDROCHLORIDE
     Indication: TYPE 2 DIABETES MELLITUS
     Route: 048
     Dates: start: 2000
  5. AMARYL [Concomitant]
     Active Substance: GLIMEPIRIDE
     Indication: TYPE 2 DIABETES MELLITUS
     Route: 048
     Dates: start: 2000
  6. JANUVIA [Concomitant]
     Active Substance: SITAGLIPTIN PHOSPHATE
     Indication: TYPE 2 DIABETES MELLITUS
     Route: 048
     Dates: start: 2017
  7. ALPHA LIPOIC ACID [Concomitant]
     Active Substance: .ALPHA.-LIPOIC ACID
     Indication: TYPE 2 DIABETES MELLITUS
     Route: 048
     Dates: start: 201710
  8. NEXIUM [Suspect]
     Active Substance: ESOMEPRAZOLE MAGNESIUM
     Route: 048
     Dates: start: 2003

REACTIONS (20)
  - Injection site haemorrhage [Unknown]
  - Needle issue [Unknown]
  - Dysgeusia [Unknown]
  - Injection site extravasation [Unknown]
  - Intentional product misuse [Unknown]
  - Off label use [Unknown]
  - Intervertebral disc protrusion [Unknown]
  - Gout [Unknown]
  - Incorrect dose administered [Unknown]
  - Underdose [Unknown]
  - Diabetes mellitus [Unknown]
  - Blood glucose increased [Unknown]
  - Cardiac disorder [Unknown]
  - Product use issue [Unknown]
  - Cellulitis [Recovering/Resolving]
  - Renal cyst [Unknown]
  - Device issue [Unknown]
  - Exostosis [Recovering/Resolving]
  - Wrong technique in product usage process [Unknown]
  - Drug ineffective [Unknown]

NARRATIVE: CASE EVENT DATE: 201301
